APPROVED DRUG PRODUCT: PALONOSETRON HYDROCHLORIDE
Active Ingredient: PALONOSETRON HYDROCHLORIDE
Strength: EQ 0.25MG BASE/5ML (EQ 0.05MG BASE/ML)
Dosage Form/Route: INJECTABLE;INTRAVENOUS
Application: A204615 | Product #001
Applicant: ACCORD HEALTHCARE INC
Approved: Mar 15, 2021 | RLD: No | RS: No | Type: DISCN